FAERS Safety Report 6914937-2 (Version None)
Quarter: 2010Q3

REPORT INFORMATION
  Report Type: 
  Country: None (occurrence: None)
  Receive Date: 20100809
  Receipt Date: 20100804
  Transmission Date: 20110219
  Serious: Yes (Death, Hospitalization)
  Sender: FDA-Public Use
  Company Number: PHHO2010US09665

PATIENT
  Sex: Male
  Weight: 74.8 kg

DRUGS (9)
  1. INTERFERON ALFA [Suspect]
     Indication: METASTATIC RENAL CELL CARCINOMA
     Dosage: 6 MIU 3 X WEEKLY
     Route: 058
     Dates: start: 20100421, end: 20100602
  2. AVASTIN [Suspect]
     Indication: METASTATIC RENAL CELL CARCINOMA
     Dosage: 778 MG Q 2 WEEKS
     Route: 042
     Dates: start: 20100421, end: 20100602
  3. TORISEL [Concomitant]
  4. DILAUDID [Concomitant]
  5. DOCUSATE [Concomitant]
  6. SENNA [Concomitant]
  7. MIRALAX [Concomitant]
  8. ACETAMINOPHEN [Concomitant]
  9. IBUPROFEN (ADVIL) [Concomitant]

REACTIONS (15)
  - ANXIETY [None]
  - CHEST PAIN [None]
  - CONSTIPATION [None]
  - COUGH [None]
  - DYSPNOEA [None]
  - DYSURIA [None]
  - INTERSTITIAL LUNG DISEASE [None]
  - LUNG CONSOLIDATION [None]
  - MALIGNANT NEOPLASM PROGRESSION [None]
  - NAUSEA [None]
  - PAIN [None]
  - PLEURAL EFFUSION [None]
  - PNEUMONIA [None]
  - SINUS DISORDER [None]
  - TACHYCARDIA [None]
